FAERS Safety Report 6329564-8 (Version None)
Quarter: 2009Q3

REPORT INFORMATION
  Report Type: 
  Country: None (occurrence: None)
  Receive Date: 20090824
  Receipt Date: 20090824
  Transmission Date: 20100115
  Serious: Yes (Hospitalization, Other)
  Sender: FDA-Public Use
  Company Number: None

PATIENT
  Sex: Female
  Weight: 99.7913 kg

DRUGS (1)
  1. METOPROLOL SUCCINATE EXTENDED RELEASE [Suspect]
     Indication: HYPERTENSION
     Dosage: 12.5 MG ONCE PER DAY PO
     Route: 048
     Dates: start: 20081101, end: 20090818

REACTIONS (29)
  - ABDOMINAL PAIN UPPER [None]
  - ALOPECIA [None]
  - AMNESIA [None]
  - BALANCE DISORDER [None]
  - BANKRUPTCY [None]
  - BURNING SENSATION [None]
  - CHAPPED LIPS [None]
  - COGNITIVE DISORDER [None]
  - DEPRESSION [None]
  - DISORIENTATION [None]
  - DISTURBANCE IN ATTENTION [None]
  - DIZZINESS [None]
  - ECONOMIC PROBLEM [None]
  - EYE PAIN [None]
  - FATIGUE [None]
  - FLUID RETENTION [None]
  - HEADACHE [None]
  - IMPAIRED WORK ABILITY [None]
  - LIVER INJURY [None]
  - MENSTRUAL DISORDER [None]
  - OVERDOSE [None]
  - PAIN IN EXTREMITY [None]
  - PAIN OF SKIN [None]
  - PRODUCT QUALITY ISSUE [None]
  - PRODUCT SIZE ISSUE [None]
  - RASH PRURITIC [None]
  - TINNITUS [None]
  - VERTIGO [None]
  - VISUAL IMPAIRMENT [None]
